FAERS Safety Report 9685237 (Version 1)
Quarter: 2013Q4

REPORT INFORMATION
  Report Type: Spontaneous
  Country: US (occurrence: None)
  Receive Date: 20131112
  Receipt Date: 20131112
  Transmission Date: 20140711
  Serious: No
  Sender: FDA-Public Use
  Company Number: None

PATIENT
  Age: 81 Year
  Sex: Male
  Weight: 86.18 kg

DRUGS (6)
  1. FINASTERIDE 5MG [Suspect]
     Indication: PROSTATIC DISORDER
     Dosage: 1 PER DAY
     Route: 048
     Dates: end: 20130917
  2. PROVASTATIN [Concomitant]
  3. CHLORTHALIDONE [Concomitant]
  4. LORATADINE [Concomitant]
  5. HYDROXYZINE [Concomitant]
  6. WARFARIN SODIUM [Concomitant]

REACTIONS (1)
  - Breast swelling [None]
